FAERS Safety Report 25830877 (Version 1)
Quarter: 2025Q3

REPORT INFORMATION
  Report Type: Spontaneous
  Country: JP (occurrence: JP)
  Receive Date: 20250922
  Receipt Date: 20250922
  Transmission Date: 20251021
  Serious: Yes (Death)
  Sender: NOVARTIS
  Company Number: JP-002147023-NVSJ2025JP009433

PATIENT
  Age: 65 Year
  Sex: Female

DRUGS (1)
  1. EVEROLIMUS [Suspect]
     Active Substance: EVEROLIMUS
     Indication: Angiosarcoma
     Route: 065

REACTIONS (3)
  - Angiosarcoma [Fatal]
  - Malignant neoplasm progression [Fatal]
  - Hepatic function abnormal [Fatal]
